FAERS Safety Report 9169635 (Version 2)
Quarter: 2013Q2

REPORT INFORMATION
  Report Type: Spontaneous
  Country: US (occurrence: US)
  Receive Date: 20130318
  Receipt Date: 20130417
  Transmission Date: 20140414
  Serious: Yes (Other)
  Sender: FDA-Public Use
  Company Number: US-PFIZER INC-2013086385

PATIENT
  Age: 49 Year
  Sex: Female
  Weight: 56.2 kg

DRUGS (5)
  1. CHANTIX [Suspect]
     Indication: SMOKING CESSATION THERAPY
     Dosage: 0.5 MG, DAILY
     Route: 048
  2. LANTUS [Concomitant]
     Indication: DIABETES MELLITUS
     Dosage: 16 IU, DAILY
  3. HUMALOG [Concomitant]
     Indication: DIABETES MELLITUS
     Dosage: UNK, 3X/DAY
  4. INSULIN [Concomitant]
     Indication: DIABETES MELLITUS
     Dosage: 6 IU, 3X/DAY
  5. LISINOPRIL [Concomitant]
     Indication: HYPERTENSION
     Dosage: 40 MG, DAILY

REACTIONS (3)
  - Pulmonary oedema [Not Recovered/Not Resolved]
  - Lung disorder [Recovered/Resolved]
  - Nasopharyngitis [Recovered/Resolved]
